FAERS Safety Report 8154879-0 (Version None)
Quarter: 2012Q1

REPORT INFORMATION
  Report Type: 
  Country: None (occurrence: None)
  Receive Date: 20120221
  Receipt Date: 20120215
  Transmission Date: 20120608
  Serious: Yes (Other)
  Sender: FDA-Public Use
  Company Number: PHEH2012US003003

PATIENT
  Sex: Female
  Weight: 72.7 kg

DRUGS (4)
  1. CYMBALTA [Concomitant]
     Dosage: 60 MG, UNK
     Route: 048
  2. PANTOPRAZOLE [Concomitant]
     Dosage: UNK UKN, UNK
  3. HYDROCHLOROTHIAZIDE [Concomitant]
     Dosage: 12.5 MG, UNK
  4. GILENYA [Suspect]
     Indication: MULTIPLE SCLEROSIS
     Dosage: 0.5 MG, QD
     Route: 048
     Dates: start: 20120111

REACTIONS (2)
  - JOINT SWELLING [None]
  - BLOOD PRESSURE INCREASED [None]
